FAERS Safety Report 13627437 (Version 1)
Quarter: 2017Q2

REPORT INFORMATION
  Report Type: Spontaneous
  Country: JP (occurrence: JP)
  Receive Date: 20170607
  Receipt Date: 20170607
  Transmission Date: 20170830
  Serious: Yes (Other)
  Sender: FDA-Public Use
  Company Number: JP-TEVA-774562ROM

PATIENT
  Age: 87 Year
  Sex: Female
  Weight: 39 kg

DRUGS (1)
  1. RISEDRONATE SODIUM - BP [Suspect]
     Active Substance: RISEDRONATE SODIUM
     Indication: OSTEOPOROSIS
     Route: 048
     Dates: start: 20161201, end: 20170517

REACTIONS (4)
  - Renal impairment [Not Recovered/Not Resolved]
  - Muscle spasms [Unknown]
  - Myopathy [Unknown]
  - Cardiac failure [Unknown]
